FAERS Safety Report 9046295 (Version 1)
Quarter: 2013Q1

REPORT INFORMATION
  Report Type: Spontaneous
  Country: US (occurrence: None)
  Receive Date: 20130128
  Receipt Date: 20130128
  Transmission Date: 20140127
  Serious: No
  Sender: FDA-Public Use
  Company Number: None

PATIENT
  Age: 76 Year
  Sex: Male

DRUGS (1)
  1. SULFAMETHOXAZOLE / TRIMETHOPRIM [Suspect]
     Indication: CELLULITIS
     Dosage: 2 TAB  BID  PO?~12/13/2012  THRU  12/19/2012?
     Route: 048
     Dates: start: 20121213, end: 20121219

REACTIONS (1)
  - Rash [None]
